FAERS Safety Report 17165577 (Version 1)
Quarter: 2019Q4

REPORT INFORMATION
  Report Type: Spontaneous
  Country: CA (occurrence: CA)
  Receive Date: 20191217
  Receipt Date: 20191217
  Transmission Date: 20200122
  Serious: Yes (Death, Hospitalization, Other)
  Sender: FDA-Public Use
  Company Number: CA-ASTRAZENECA-2019SF82238

PATIENT
  Sex: Female

DRUGS (1)
  1. CRESTOR [Suspect]
     Active Substance: ROSUVASTATIN CALCIUM
     Route: 048

REACTIONS (18)
  - Brain injury [Unknown]
  - Peripheral vascular disorder [Unknown]
  - Rhabdomyolysis [Unknown]
  - Coma [Unknown]
  - Blood potassium abnormal [Unknown]
  - Dyspnoea [Unknown]
  - Limb discomfort [Unknown]
  - Retinopathy [Unknown]
  - Myocardial infarction [Unknown]
  - Nephrolithiasis [Unknown]
  - Hypotension [Unknown]
  - Platelet disorder [Unknown]
  - Haematocrit [Unknown]
  - Acute kidney injury [Unknown]
  - Coronary artery disease [Unknown]
  - Death [Fatal]
  - Cough [Unknown]
  - Chronic kidney disease [Unknown]

NARRATIVE: CASE EVENT DATE: 20190726
